FAERS Safety Report 16885464 (Version 1)
Quarter: 2019Q4

REPORT INFORMATION
  Report Type: Spontaneous
  Country: US (occurrence: US)
  Receive Date: 20190809
  Receipt Date: 20190809
  Transmission Date: 20200122
  Serious: No
  Sender: FDA-Public Use
  Company Number: None

PATIENT
  Age: 44 Year
  Sex: Female

DRUGS (1)
  1. HUMIRA [Suspect]
     Active Substance: ADALIMUMAB
     Indication: ILL-DEFINED DISORDER
     Dosage: ?          OTHER FREQUENCY:EVERY2WKS;?
     Route: 058
     Dates: start: 20190325

REACTIONS (3)
  - Headache [None]
  - Fatigue [None]
  - Alopecia [None]

NARRATIVE: CASE EVENT DATE: 201905
